FAERS Safety Report 14363274 (Version 1)
Quarter: 2018Q1

REPORT INFORMATION
  Report Type: Spontaneous
  Country: US (occurrence: US)
  Receive Date: 20180108
  Receipt Date: 20180108
  Transmission Date: 20180509
  Serious: Yes (Other)
  Sender: FDA-Public Use
  Company Number: US-JNJFOC-20180106556

PATIENT
  Age: 68 Year
  Sex: Male

DRUGS (11)
  1. MEVACOR [Concomitant]
     Active Substance: LOVASTATIN
  2. DECADRON [Concomitant]
     Active Substance: DEXAMETHASONE
  3. DECADRON [Concomitant]
     Active Substance: DEXAMETHASONE
  4. ZESTRIL [Concomitant]
     Active Substance: LISINOPRIL
  5. GLUCOPHAGE [Concomitant]
     Active Substance: METFORMIN HYDROCHLORIDE
  6. CASODEX [Concomitant]
     Active Substance: BICALUTAMIDE
  7. AMARYL [Concomitant]
     Active Substance: GLIMEPIRIDE
  8. REVLIMID [Concomitant]
     Active Substance: LENALIDOMIDE
  9. PRINIVIL [Concomitant]
     Active Substance: LISINOPRIL
  10. IMBRUVICA [Suspect]
     Active Substance: IBRUTINIB
     Indication: MANTLE CELL LYMPHOMA
     Route: 048
  11. LORTAB [Concomitant]
     Active Substance: ACETAMINOPHEN\HYDROCODONE BITARTRATE

REACTIONS (5)
  - Haematocrit decreased [Unknown]
  - Haemoglobin decreased [Unknown]
  - Hypertension [Unknown]
  - Spinal column stenosis [Unknown]
  - Prostate cancer [Unknown]

NARRATIVE: CASE EVENT DATE: 20171023
